FAERS Safety Report 20509787 (Version 1)
Quarter: 2022Q1

REPORT INFORMATION
  Report Type: Spontaneous
  Country: FR (occurrence: FR)
  Receive Date: 20220224
  Receipt Date: 20220224
  Transmission Date: 20220424
  Serious: Yes (Hospitalization)
  Sender: FDA-Public Use
  Company Number: FR-AFSSAPS-CN20220174

PATIENT
  Age: 41 Year
  Sex: Female
  Weight: 69 kg

DRUGS (3)
  1. AMOXICILLIN [Suspect]
     Active Substance: AMOXICILLIN
     Indication: Tooth extraction
     Dosage: 3 GRAM, ONCE A DAY (AMOXICILLIN 1 G 1-1-1 ORALLY)
     Route: 048
     Dates: start: 20220204, end: 20220207
  2. IOMERON [Suspect]
     Active Substance: IOMEPROL
     Indication: Angiocardiogram
     Dosage: 1 DOSAGE FORM 1 TOTAL (IOMERON? 400 1 INJECTION)
     Route: 042
     Dates: start: 20220203, end: 20220203
  3. IOMERON [Suspect]
     Active Substance: IOMEPROL
     Dosage: 1 DOSAGE FORM 1 TOTAL (IOMERON? 400 1 INJECTION)
     Route: 042
     Dates: start: 20220131, end: 20220131

REACTIONS (1)
  - Rash maculo-papular [Recovering/Resolving]

NARRATIVE: CASE EVENT DATE: 20220204
